FAERS Safety Report 5523991-4 (Version None)
Quarter: 2007Q4

REPORT INFORMATION
  Report Type: 
  Country: None (occurrence: None)
  Receive Date: 20071121
  Receipt Date: 20071116
  Transmission Date: 20080405
  Serious: Yes (Death)
  Sender: FDA-Public Use
  Company Number: US-SHR-US-2007-038986

PATIENT
  Sex: Male
  Weight: 72.6 kg

DRUGS (2)
  1. BETASERON [Suspect]
     Indication: PROGRESSIVE MULTIPLE SCLEROSIS
     Route: 058
  2. ^HOSPICE MAINTENANCE MEDICATIONS^ [Concomitant]

REACTIONS (1)
  - PROGRESSIVE MULTIPLE SCLEROSIS [None]
